FAERS Safety Report 13460922 (Version 1)
Quarter: 2017Q2

REPORT INFORMATION
  Report Type: Report from Study
  Country: CN (occurrence: CN)
  Receive Date: 20170420
  Receipt Date: 20170420
  Transmission Date: 20170830
  Serious: Yes (Hospitalization)
  Sender: FDA-Public Use
  Company Number: CN-ROCHE-1027910

PATIENT
  Age: 42 Year
  Sex: Male
  Weight: 61 kg

DRUGS (46)
  1. DEXAMETHASONE SODIUM PHOSPHATE. [Concomitant]
     Active Substance: DEXAMETHASONE SODIUM PHOSPHATE
     Route: 065
     Dates: start: 20120118, end: 20120118
  2. METOCLOPRAMIDE HYDROCHLORIDE. [Concomitant]
     Active Substance: METOCLOPRAMIDE HYDROCHLORIDE
     Route: 065
     Dates: start: 20120102, end: 20120102
  3. VITAMIN E [Concomitant]
     Active Substance: .ALPHA.-TOCOPHEROL
     Route: 065
     Dates: start: 20120121, end: 20120203
  4. BETAHISTINE HYDROCHLORIDE [Concomitant]
     Active Substance: BETAHISTINE HYDROCHLORIDE
     Indication: TINNITUS
  5. INVERT SUGAR [Concomitant]
     Active Substance: INVERT SUGAR
     Route: 065
     Dates: start: 20111231, end: 20120102
  6. GLUTATHIONE [Concomitant]
     Active Substance: GLUTATHIONE
     Route: 065
     Dates: start: 20111231, end: 20120102
  7. ESOMEPRAZOLE MAGNESIUM. [Concomitant]
     Active Substance: ESOMEPRAZOLE MAGNESIUM
     Route: 065
     Dates: start: 20120102, end: 20120110
  8. INVERT SUGAR [Concomitant]
     Active Substance: INVERT SUGAR
     Route: 065
     Dates: start: 20120104, end: 20120113
  9. PLASBUMIN-25 [Concomitant]
     Active Substance: ALBUMIN HUMAN
     Route: 065
     Dates: start: 20120111, end: 20120118
  10. BEVACIZUMAB [Suspect]
     Active Substance: BEVACIZUMAB
     Indication: NON-SMALL CELL LUNG CANCER
     Dosage: LAST DOSE PRIOR TO SAE 01 JAN 2012
     Route: 042
     Dates: start: 20120101
  11. GLUCUROLACTONE [Concomitant]
     Active Substance: GLUCUROLACTONE
     Route: 065
     Dates: start: 20111222, end: 20120121
  12. VITAMIN C [Concomitant]
     Active Substance: ASCORBIC ACID
     Route: 065
     Dates: start: 20120121, end: 20120203
  13. ITOPRIDE HYDROCHLORIDE [Concomitant]
     Active Substance: ITOPRIDE HYDROCHLORIDE
     Indication: VOMITING
     Route: 065
     Dates: start: 20120121, end: 20120127
  14. DIHYDROCODEINE TARTRATE [Concomitant]
     Active Substance: DIHYDROCODEINE BITARTRATE
     Indication: ANALGESIC THERAPY
     Route: 065
     Dates: start: 20120104, end: 20120109
  15. PARACETAMOL [Concomitant]
     Active Substance: ACETAMINOPHEN
     Indication: ANALGESIC THERAPY
     Route: 065
     Dates: start: 20120104, end: 20120109
  16. LING ZHI [Concomitant]
     Route: 065
     Dates: start: 20120103, end: 20120120
  17. GLUCUROLACTONE [Concomitant]
     Active Substance: GLUCUROLACTONE
     Route: 065
     Dates: start: 20120103, end: 20120130
  18. LIDOCAINE HYDROCHLORIDE. [Concomitant]
     Active Substance: LIDOCAINE HYDROCHLORIDE
     Indication: LOCAL ANAESTHESIA
     Route: 065
     Dates: start: 20120102, end: 20120102
  19. POLYENEPHOSPHATIDYL CHOLINE [Concomitant]
     Route: 065
     Dates: start: 20111230, end: 20120121
  20. LENTINAN [Concomitant]
     Active Substance: LENTINAN
     Route: 065
     Dates: start: 20120104, end: 20120109
  21. ESOMEPRAZOLE MAGNESIUM. [Concomitant]
     Active Substance: ESOMEPRAZOLE MAGNESIUM
     Route: 065
     Dates: start: 20120113, end: 20120121
  22. ESOMEPRAZOLE MAGNESIUM. [Concomitant]
     Active Substance: ESOMEPRAZOLE MAGNESIUM
     Route: 065
     Dates: start: 20120121, end: 20120127
  23. DEXAMETHASONE SODIUM PHOSPHATE. [Concomitant]
     Active Substance: DEXAMETHASONE SODIUM PHOSPHATE
     Route: 065
     Dates: start: 20111231, end: 20111231
  24. ZOLPIDEM TARTRATE. [Concomitant]
     Active Substance: ZOLPIDEM TARTRATE
     Indication: INSOMNIA
     Route: 065
     Dates: start: 20120114, end: 20120114
  25. PACLITAXEL. [Suspect]
     Active Substance: PACLITAXEL
     Indication: NON-SMALL CELL LUNG CANCER
     Dosage: LAST DOSE PRIOR TO SAE 01 JAN 2012
     Route: 042
     Dates: start: 20120101
  26. POLYENEPHOSPHATIDYL CHOLINE [Concomitant]
     Route: 065
     Dates: start: 20120121, end: 20120127
  27. THYMOSIN ALPHA-1 [Concomitant]
     Route: 065
     Dates: start: 20120104, end: 20120121
  28. BENZYLPENICILLIN SODIUM [Concomitant]
     Active Substance: PENICILLIN G SODIUM
     Indication: SKIN TEST
     Route: 065
     Dates: start: 20120118, end: 20120118
  29. VITAMIN B COMPLEX [Concomitant]
     Active Substance: CYANOCOBALAMIN\DEXPANTHENOL\NIACINAMIDE\PYRIDOXINE HYDROCHLORIDE\RIBOFLAVIN 5^-PHOSPHATE SODIUM\THIAMINE HYDROCHLORIDE\VITAMIN B COMPLEX
     Route: 065
     Dates: start: 20120120, end: 20120203
  30. GLOSSY GANODERMA [Concomitant]
     Route: 065
     Dates: start: 20120121, end: 20120207
  31. VITAMIN B COMPOUND [Concomitant]
     Indication: HYPOVITAMINOSIS
     Route: 065
     Dates: start: 20111230, end: 20120121
  32. LENTINAN [Concomitant]
     Active Substance: LENTINAN
     Route: 065
     Dates: start: 20111231, end: 20120102
  33. TROPISETRON HYDROCHLORIDE [Concomitant]
     Active Substance: TROPISETRON HYDROCHLORIDE
     Route: 065
     Dates: start: 20111231, end: 20111231
  34. RANITIDINE HYDROCHLORIDE. [Concomitant]
     Active Substance: RANITIDINE HYDROCHLORIDE
     Route: 065
     Dates: start: 20111231, end: 20111231
  35. LIDOCAINE HYDROCHLORIDE. [Concomitant]
     Active Substance: LIDOCAINE HYDROCHLORIDE
     Route: 065
     Dates: start: 20120120, end: 20120121
  36. MEGESTROL ACETATE. [Concomitant]
     Active Substance: MEGESTROL ACETATE
     Route: 065
     Dates: start: 20120121, end: 20120127
  37. HUMAN IMMUNOGLOBULIN [Concomitant]
     Active Substance: HUMAN IMMUNOGLOBULIN G
     Dosage: DRUG WAS REPORTED AS HUMAN IMMUNOGLOBULIN (PH4)
     Route: 042
     Dates: start: 20120110, end: 20120113
  38. CARBOPLATIN. [Suspect]
     Active Substance: CARBOPLATIN
     Indication: NON-SMALL CELL LUNG CANCER
     Dosage: LAST DOSE PRIOR TO SAE 01 JAN 2012
     Route: 042
     Dates: start: 20120101
  39. MOXIFLOXACIN HYDROCHLORIDE. [Concomitant]
     Active Substance: MOXIFLOXACIN HYDROCHLORIDE
     Route: 065
     Dates: start: 20111221, end: 20120110
  40. VITAMIN B6 [Concomitant]
     Active Substance: PYRIDOXINE HYDROCHLORIDE
     Indication: HYPOVITAMINOSIS
     Route: 065
     Dates: start: 20111224, end: 20111230
  41. VITAMIN C [Concomitant]
     Active Substance: ASCORBIC ACID
     Indication: HYPOVITAMINOSIS
     Route: 065
     Dates: start: 20111224, end: 20111230
  42. ITOPRIDE HYDROCHLORIDE [Concomitant]
     Active Substance: ITOPRIDE HYDROCHLORIDE
     Indication: NAUSEA
     Route: 065
     Dates: start: 20120102, end: 20120121
  43. BETAHISTINE HYDROCHLORIDE [Concomitant]
     Active Substance: BETAHISTINE HYDROCHLORIDE
     Indication: DIZZINESS
     Route: 065
     Dates: start: 20120102, end: 20120104
  44. GLYCERINE [Concomitant]
     Active Substance: GLYCERIN
     Indication: CONSTIPATION
     Dosage: DRUG REPORTED AS GLYCERIN EDEMA
     Route: 065
     Dates: start: 20111230, end: 20111230
  45. DEXAMETHASONE SODIUM PHOSPHATE. [Concomitant]
     Active Substance: DEXAMETHASONE SODIUM PHOSPHATE
     Route: 065
     Dates: start: 20120120, end: 20120121
  46. LIDOCAINE HYDROCHLORIDE. [Concomitant]
     Active Substance: LIDOCAINE HYDROCHLORIDE
     Route: 065
     Dates: start: 20120118, end: 20120118

REACTIONS (1)
  - Bone marrow failure [Recovered/Resolved]

NARRATIVE: CASE EVENT DATE: 20120104
